FAERS Safety Report 4600291-8 (Version None)
Quarter: 2005Q1

REPORT INFORMATION
  Report Type: 
  Country: None (occurrence: None)
  Receive Date: 20050303
  Receipt Date: 20050303
  Transmission Date: 20050727
  Serious: No
  Sender: FDA-Public Use
  Company Number: None

PATIENT
  Sex: Female
  Weight: 56 kg

DRUGS (2)
  1. ADRIAMYCIN PFS [Suspect]
     Dosage: 60 MG/M2 IV BOLUS FIRST
     Route: 042
     Dates: start: 20050118
  2. CYTOXAN [Suspect]
     Dosage: 600 MG/M2 IV ON DAY 1 REPEAT EVERY 21 DAYS
     Route: 042
     Dates: start: 20050118

REACTIONS (5)
  - ATRIAL FIBRILLATION [None]
  - BLOOD MAGNESIUM DECREASED [None]
  - BLOOD POTASSIUM DECREASED [None]
  - FEBRILE NEUTROPENIA [None]
  - PLATELET COUNT DECREASED [None]
